FAERS Safety Report 9834076 (Version 1)
Quarter: 2014Q1

REPORT INFORMATION
  Report Type: Report from Study
  Country: SA (occurrence: SA)
  Receive Date: 20140122
  Receipt Date: 20140122
  Transmission Date: 20141002
  Serious: Yes (Other)
  Sender: FDA-Public Use
  Company Number: SA-ROCHE-1335298

PATIENT
  Age: 62 Year
  Sex: Female
  Weight: 78 kg

DRUGS (6)
  1. RIBAVIRIN [Suspect]
     Indication: RESPIRATORY TRACT INFECTION VIRAL
     Dosage: NASOGASTRIC TUBE, LOADING DOSE
     Route: 045
  2. RIBAVIRIN [Suspect]
     Route: 048
  3. INTERFERON ALFA-2B [Suspect]
     Indication: RESPIRATORY TRACT INFECTION VIRAL
     Dosage: TWO DOSE
     Route: 058
  4. METHYLPREDNISOLONE [Concomitant]
     Dosage: FOR 1 DAYS
     Route: 042
  5. METHYLPREDNISOLONE [Concomitant]
     Dosage: FOR 2 DAYS
     Route: 042
  6. METHYLPREDNISOLONE [Concomitant]
     Dosage: FOR 2 DAYS
     Route: 042

REACTIONS (1)
  - Pancreatic enzymes increased [Unknown]
